FAERS Safety Report 5277320-4 (Version None)
Quarter: 2007Q1

REPORT INFORMATION
  Report Type: 
  Country: None (occurrence: None)
  Receive Date: 20070327
  Receipt Date: 20070315
  Transmission Date: 20070707
  Serious: Yes (Life-Threatening)
  Sender: FDA-Public Use
  Company Number: JP-MERCK-0612USA01247

PATIENT
  Age: 89 Year
  Sex: Female

DRUGS (4)
  1. STROMECTOL [Suspect]
     Indication: ACARODERMATITIS
     Route: 048
     Dates: start: 20061102, end: 20061102
  2. STROMECTOL [Suspect]
     Route: 048
     Dates: start: 20061116, end: 20061116
  3. AMAZOLON [Concomitant]
     Indication: PARKINSON'S DISEASE
     Route: 048
     Dates: start: 20061107
  4. NEODOPASTON [Concomitant]
     Indication: PARKINSON'S DISEASE
     Route: 048
     Dates: start: 20061107

REACTIONS (2)
  - ANAEMIA [None]
  - CARDIAC FAILURE [None]
